FAERS Safety Report 12913223 (Version 3)
Quarter: 2017Q2

REPORT INFORMATION
  Report Type: Spontaneous
  Country: RU (occurrence: RU)
  Receive Date: 20161104
  Receipt Date: 20170615
  Transmission Date: 20170830
  Serious: Yes (Other)
  Sender: FDA-Public Use
  Company Number: RU-ASTRAZENECA-2016SF13869

PATIENT
  Age: 77 Year
  Sex: Female

DRUGS (9)
  1. EPLERENONE. [Concomitant]
     Active Substance: EPLERENONE
  2. TRIGRIM [Concomitant]
  3. CARDIOMAGNYL [Concomitant]
     Active Substance: ASPIRIN\MAGNESIUM HYDROXIDE
  4. CONCOR [Concomitant]
     Active Substance: BISOPROLOL FUMARATE
  5. BRILINTA [Suspect]
     Active Substance: TICAGRELOR
     Indication: ANGINA UNSTABLE
     Route: 048
     Dates: start: 201512
  6. PHLEBODIA [Concomitant]
     Active Substance: DIOSMIN
  7. CRESTOR [Concomitant]
     Active Substance: ROSUVASTATIN CALCIUM
  8. PREDUCTAL MR [Concomitant]
     Active Substance: TRIMETAZIDINE DIHYDROCHLORIDE
  9. RANEXA [Concomitant]
     Active Substance: RANOLAZINE

REACTIONS (11)
  - Headache [Not Recovered/Not Resolved]
  - Viral upper respiratory tract infection [Recovering/Resolving]
  - Lacrimation increased [Not Recovered/Not Resolved]
  - Muscle spasms [Not Recovered/Not Resolved]
  - Abscess [Recovered/Resolved]
  - Vascular occlusion [Unknown]
  - Contusion [Not Recovered/Not Resolved]
  - Angina pectoris [Unknown]
  - Oedema peripheral [Not Recovered/Not Resolved]
  - Blood pressure increased [Not Recovered/Not Resolved]
  - Blood pressure decreased [Unknown]

NARRATIVE: CASE EVENT DATE: 201512
